FAERS Safety Report 16277570 (Version 1)
Quarter: 2019Q2

REPORT INFORMATION
  Report Type: Spontaneous
  Country: CH (occurrence: CH)
  Receive Date: 20190506
  Receipt Date: 20190506
  Transmission Date: 20190711
  Serious: Yes (Death, Hospitalization, Congenital Anomaly, Other)
  Sender: FDA-Public Use
  Company Number: CH-PFIZER INC-2019187233

PATIENT
  Sex: Male
  Weight: .84 kg

DRUGS (8)
  1. QUETIAPINE [QUETIAPINE FUMARATE] [Suspect]
     Active Substance: QUETIAPINE FUMARATE
     Dosage: 30 MG, 1X/DAY
     Route: 064
     Dates: start: 20180516, end: 20181008
  2. VENLAFAXINE HCL [Suspect]
     Active Substance: VENLAFAXINE HYDROCHLORIDE
     Dosage: 150 MG, 1X/DAY
     Route: 064
     Dates: start: 20180516, end: 20181008
  3. TRAMAL [Suspect]
     Active Substance: TRAMADOL
     Dosage: 1 DF AS NECESSARY
     Route: 064
  4. CAMPRAL [Suspect]
     Active Substance: ACAMPROSATE CALCIUM
     Dosage: 600 MG, 3X/DAY/ USUAL TREATMENT
     Route: 064
  5. QUETIAPINE [QUETIAPINE FUMARATE] [Suspect]
     Active Substance: QUETIAPINE FUMARATE
     Dosage: 50 MG, 1X/DAY / USUAL TREATMENT
     Route: 064
     Dates: end: 20180516
  6. XANAX [Suspect]
     Active Substance: ALPRAZOLAM
     Dosage: 1 MG, 3X/DAY / USUAL TREATMENT
     Route: 064
  7. VENLAFAXINE HCL [Suspect]
     Active Substance: VENLAFAXINE HYDROCHLORIDE
     Dosage: 225 MG, 1X/DAY
     Route: 064
     Dates: end: 20180516
  8. DALMADORM [Suspect]
     Active Substance: FLURAZEPAM HYDROCHLORIDE
     Dosage: 15 MG, 1X/DAY / USUAL TREATMENT
     Route: 064

REACTIONS (11)
  - Neonatal respiratory distress syndrome [Fatal]
  - Cerebral ventricle dilatation [Not Recovered/Not Resolved]
  - Foetal alcohol syndrome [Fatal]
  - Septum pellucidum agenesis [Not Recovered/Not Resolved]
  - Septo-optic dysplasia [Not Recovered/Not Resolved]
  - Exposure during pregnancy [Fatal]
  - Premature baby [Fatal]
  - Vasculitis [Fatal]
  - Microcephaly [Fatal]
  - Inguinal hernia [Unknown]
  - Amniotic cavity infection [Fatal]

NARRATIVE: CASE EVENT DATE: 20181008
